FAERS Safety Report 6454741-5 (Version None)
Quarter: 2009Q4

REPORT INFORMATION
  Report Type: 
  Country: None (occurrence: None)
  Receive Date: 20091124
  Receipt Date: 20091113
  Transmission Date: 20100525
  Serious: Yes (Congenital Anomaly)
  Sender: FDA-Public Use
  Company Number: US-WATSON-2009-09800

PATIENT
  Age: 20 Week

DRUGS (4)
  1. NORCO 10/325 (WATSON LABORATORIES) [Suspect]
     Indication: PAIN
     Dosage: ^ONE TO TWO EVERY FOUR HOURS AS REQUIRED^
     Route: 065
  2. REBIF [Suspect]
     Indication: MULTIPLE SCLEROSIS
     Dosage: 44 MCG, 3 IN 1 WEEK
     Route: 064
     Dates: start: 20080809, end: 20081126
  3. YAZ [Suspect]
     Indication: CONTRACEPTION
     Dosage: UNK
     Route: 064
     Dates: start: 20080601, end: 20081201
  4. FLEXERIL [Suspect]
     Indication: MUSCLE SPASMS
     Dosage: 20 MG, DAILY
     Route: 064

REACTIONS (3)
  - CONGENITAL CENTRAL NERVOUS SYSTEM ANOMALY [None]
  - MENINGOMYELOCELE [None]
  - NEURAL TUBE DEFECT [None]
